FAERS Safety Report 7013063-4 (Version None)
Quarter: 2010Q3

REPORT INFORMATION
  Report Type: 
  Country: None (occurrence: None)
  Receive Date: 20100909
  Receipt Date: 20100527
  Transmission Date: 20110219
  Serious: Yes (Hospitalization)
  Sender: FDA-Public Use
  Company Number: 2010SP029809

PATIENT
  Sex: Female

DRUGS (2)
  1. SAPHRIS [Suspect]
     Indication: SCHIZOPHRENIA
     Dosage: 5 MG;BID;PO
     Route: 048
  2. SEROQUEL /01270902/ (CON.) [Concomitant]

REACTIONS (2)
  - BLOOD PRESSURE DECREASED [None]
  - INCORRECT ROUTE OF DRUG ADMINISTRATION [None]
